FAERS Safety Report 7001803-X (Version None)
Quarter: 2010Q3

REPORT INFORMATION
  Report Type: 
  Country: None (occurrence: None)
  Receive Date: 20100920
  Receipt Date: 20091123
  Transmission Date: 20110219
  Serious: No
  Sender: FDA-Public Use
  Company Number: US-ASTRAZENECA-2007UW18091

PATIENT
  Age: 15628 Day
  Sex: Female
  Weight: 68.5 kg

DRUGS (28)
  1. SEROQUEL [Suspect]
     Indication: SLEEP DISORDER
     Dosage: 100-200 MG
     Route: 048
     Dates: start: 20000925
  2. SEROQUEL [Suspect]
     Indication: BIPOLAR DISORDER
     Dosage: 100-200 MG
     Route: 048
     Dates: start: 20000925
  3. SEROQUEL [Suspect]
     Dosage: 25 MG, 50 MG, 500 MG
     Route: 048
     Dates: start: 20020101, end: 20060413
  4. SEROQUEL [Suspect]
     Dosage: 25 MG, 50 MG, 500 MG
     Route: 048
     Dates: start: 20020101, end: 20060413
  5. PROCHLORPERA [Concomitant]
     Dosage: 10MG/2ML SDV, 2M
     Dates: start: 20000925
  6. BUTORPHANOL T [Concomitant]
     Dosage: 2MG/1 ML, 1 M
     Dates: start: 20000925
  7. DIPHENHYDRAM [Concomitant]
     Dosage: 50 MG/1ML SDV, 1 M
     Dates: start: 20000925
  8. PROMETHAZINE HCL [Concomitant]
     Dosage: 25MG/1 ML, 1 M
     Dates: start: 20000925
  9. CEFAZOLIN [Concomitant]
     Dosage: 1GM/5ML
     Dates: start: 20010129
  10. PROPOFOL [Concomitant]
     Dosage: 200MG/20ML SDV,20 ML
     Dates: start: 20010224
  11. KETOROLACTROMET [Concomitant]
     Dosage: 30 MG/1ML,1 M
     Dates: start: 20010224
  12. METOCLOPRAMIDE HCL [Concomitant]
     Dates: start: 20010224
  13. RANITIDINE H [Concomitant]
     Dosage: 50MG/2ML SDV,2 M
     Dates: start: 20010224
  14. MORPHINE S TUBEX [Concomitant]
     Dosage: 4MG/1 ML,1 M  /  10MG/1ML,1 M
     Dates: start: 20010224
  15. GLYCOPYRROL [Concomitant]
     Dosage: 0.4MG/2ML SDV,2 M
     Dates: start: 20010224
  16. SUCCINYLCHOLINE CHLORIDE [Concomitant]
     Dosage: 20MG/1 ML,10 M
     Dates: start: 20010224
  17. ROCURONIUM BROMIDE [Concomitant]
     Dosage: 10MG/ML 10ML IV,10
     Dates: start: 20010224
  18. CITRIC ACID-SODIUM [Concomitant]
     Dosage: 30ML, 30 M
     Dates: start: 20010224
  19. NALOXONE HC [Concomitant]
     Dosage: 0.4MG/1 ML SDV,1 M
     Dates: start: 20010224
  20. OXYCODONE HCL AND ACETAMINOPHEN [Concomitant]
     Dosage: 5/325
     Dates: start: 20010225
  21. OXYCODONE HCL [Concomitant]
     Dates: start: 20010225
  22. SIMETHICON [Concomitant]
     Dosage: 40MG/0.6ML 30ML,30
     Dates: start: 20010225
  23. FENTANYL CITRA [Concomitant]
     Dosage: O.25MG/5ML,5 M  /  0.1 MG
     Dates: start: 20010225
  24. LORAZEPAM [Concomitant]
     Dates: start: 20040114
  25. ALPRAZOLAM [Concomitant]
     Dates: start: 20041204
  26. ZOLPIDEM TARTRATE [Concomitant]
     Dates: start: 20041204
  27. LIDOCAINE HYDROCHLORIDE [Concomitant]
     Dates: start: 20071112
  28. MIDAZOLAM HCL [Concomitant]
     Dates: start: 20071112

REACTIONS (4)
  - DIABETES MELLITUS [None]
  - DIABETES MELLITUS INADEQUATE CONTROL [None]
  - PAIN IN EXTREMITY [None]
  - TYPE 2 DIABETES MELLITUS [None]
